FAERS Safety Report 6194461-8 (Version None)
Quarter: 2009Q2

REPORT INFORMATION
  Report Type: 
  Country: None (occurrence: None)
  Receive Date: 20090519
  Receipt Date: 20090508
  Transmission Date: 20091009
  Serious: Yes (Hospitalization, Other)
  Sender: FDA-Public Use
  Company Number: PHHY2009MX17934

PATIENT
  Age: 42 Year
  Sex: Female

DRUGS (1)
  1. ZELMAC [Suspect]
     Indication: IRRITABLE BOWEL SYNDROME
     Dosage: 6MG, 2 TABLETS PER DAY
     Route: 048
     Dates: start: 20090401, end: 20090501

REACTIONS (2)
  - ASTHMA [None]
  - HYSTERECTOMY [None]
